FAERS Safety Report 4464782-5 (Version None)
Quarter: 2004Q4

REPORT INFORMATION
  Report Type: 
  Country: None (occurrence: None)
  Receive Date: 20041004
  Receipt Date: 20040827
  Transmission Date: 20050328
  Serious: Yes (Hospitalization)
  Sender: FDA-Public Use
  Company Number: MCN8379630

PATIENT
  Age: 64 Year
  Sex: Female

DRUGS (2)
  1. COREG [Suspect]
     Indication: HYPERTENSION
     Route: 048
     Dates: start: 20040817, end: 20040826
  2. NO CONCURRENT MEDICATION [Concomitant]

REACTIONS (2)
  - DYSPNOEA [None]
  - SWELLING [None]
